FAERS Safety Report 25379425 (Version 1)
Quarter: 2025Q2

REPORT INFORMATION
  Report Type: Spontaneous
  Country: PL (occurrence: PL)
  Receive Date: 20250530
  Receipt Date: 20250530
  Transmission Date: 20250717
  Serious: Yes (Hospitalization, Other)
  Sender: RANBAXY
  Company Number: PL-SUN PHARMACEUTICAL INDUSTRIES LTD-2025R1-509174

PATIENT
  Age: 37 Year
  Sex: Female

DRUGS (5)
  1. ASPIRIN [Suspect]
     Active Substance: ASPIRIN
     Indication: In vitro fertilisation
     Route: 065
  2. ENOXAPARIN SODIUM [Suspect]
     Active Substance: ENOXAPARIN SODIUM
     Indication: In vitro fertilisation
     Route: 058
  3. INSULIN NOS [Suspect]
     Active Substance: INSULIN NOS
     Indication: Gestational diabetes
     Route: 065
  4. METHYLDOPA [Suspect]
     Active Substance: METHYLDOPA
     Indication: In vitro fertilisation
     Route: 065
  5. HEPARIN [Suspect]
     Active Substance: HEPARIN SODIUM
     Indication: In vitro fertilisation
     Route: 065

REACTIONS (8)
  - Exposure during pregnancy [Unknown]
  - Gestational diabetes [Unknown]
  - Pre-eclampsia [Unknown]
  - Low density lipoprotein abnormal [Unknown]
  - Proteinuria [Unknown]
  - Drug ineffective [Unknown]
  - Premature delivery [Unknown]
  - Blood triglycerides abnormal [Unknown]
